FAERS Safety Report 7720494-3 (Version None)
Quarter: 2011Q3

REPORT INFORMATION
  Report Type: 
  Country: None (occurrence: None)
  Receive Date: 20110825
  Receipt Date: 20110812
  Transmission Date: 20111222
  Serious: Yes (Disabling, Other)
  Sender: FDA-Public Use
  Company Number: 2011MA011805

PATIENT
  Age: 72 Year
  Sex: Male

DRUGS (2)
  1. TRAMADOL HCL [Suspect]
     Indication: ARTHRALGIA
     Dosage: 50 MG;BID
  2. LIPITOR [Suspect]
     Indication: BLOOD CHOLESTEROL INCREASED
     Dosage: 20 MG;QD
     Dates: start: 20110201, end: 20110613

REACTIONS (7)
  - INCISION SITE PAIN [None]
  - WEIGHT DECREASED [None]
  - CARPAL TUNNEL SYNDROME [None]
  - ARTHRALGIA [None]
  - ASTHENIA [None]
  - MYALGIA [None]
  - OEDEMA PERIPHERAL [None]
